FAERS Safety Report 4302649-3 (Version None)
Quarter: 2004Q1

REPORT INFORMATION
  Report Type: 
  Country: None (occurrence: None)
  Receive Date: 20040224
  Receipt Date: 20040120
  Transmission Date: 20041129
  Serious: Yes (Disabling, Other)
  Sender: FDA-Public Use
  Company Number: GB-BRISTOL-MYERS SQUIBB COMPANY-12482980

PATIENT
  Age: 55 Year
  Sex: Female

DRUGS (3)
  1. CARBOPLATIN [Suspect]
     Indication: OVARIAN CANCER
     Dates: start: 20031204, end: 20031204
  2. PACLITAXEL [Suspect]
     Indication: OVARIAN CANCER
     Dates: start: 20031204, end: 20031204
  3. GEMCITABINE [Suspect]
     Indication: OVARIAN CANCER
     Dates: start: 20031204, end: 20031204

REACTIONS (10)
  - ANXIETY [None]
  - ARTHRALGIA [None]
  - DIARRHOEA [None]
  - DYSPNOEA [None]
  - FATIGUE [None]
  - HEADACHE [None]
  - MOOD ALTERED [None]
  - PAIN IN EXTREMITY [None]
  - PALPITATIONS [None]
  - TREMOR [None]
